FAERS Safety Report 7465785-9 (Version None)
Quarter: 2011Q2

REPORT INFORMATION
  Report Type: 
  Country: None (occurrence: None)
  Receive Date: 20110509
  Receipt Date: 20100407
  Transmission Date: 20111010
  Serious: No
  Sender: FDA-Public Use
  Company Number: US-ALEXION-A200901067

PATIENT
  Sex: Male

DRUGS (8)
  1. VITAMIN C                          /00008001/ [Concomitant]
     Dosage: UNK
     Route: 048
  2. SOLIRIS [Suspect]
     Dosage: 900 MG, Q2W
     Route: 042
     Dates: start: 20070716, end: 20091201
  3. SULFASALAZINE [Concomitant]
     Indication: COLITIS ULCERATIVE
     Dosage: 500 MG, TID
     Route: 048
  4. VALACICLOVIR [Concomitant]
     Dosage: 1000 MG, (2) Q12 H
     Route: 048
  5. SOLIRIS [Suspect]
     Indication: PAROXYSMAL NOCTURNAL HAEMOGLOBINURIA
     Dosage: 600 MG, QW
     Route: 042
     Dates: start: 20070618, end: 20070709
  6. EXJADE [Concomitant]
     Dosage: 500 MG, QID
     Route: 048
  7. SOLIRIS [Suspect]
     Dosage: 900 MG, Q12 DAYS
     Route: 042
     Dates: start: 20091201, end: 20091201
  8. SOLIRIS [Suspect]
     Dosage: 900 MG, Q2W
     Route: 042
     Dates: start: 20091201

REACTIONS (1)
  - HAEMOGLOBIN DECREASED [None]
